FAERS Safety Report 25269459 (Version 1)
Quarter: 2025Q2

REPORT INFORMATION
  Report Type: Spontaneous
  Country: CA (occurrence: US)
  Receive Date: 20250505
  Receipt Date: 20250505
  Transmission Date: 20250716
  Serious: Yes (Life-Threatening, Other)
  Sender: Kenvue
  Company Number: CA-KENVUE-20250408842

PATIENT

DRUGS (1)
  1. ACETAMINOPHEN [Suspect]
     Active Substance: ACETAMINOPHEN
     Indication: Product used for unknown indication
     Route: 065

REACTIONS (9)
  - Acute hepatic failure [Unknown]
  - Hepatic encephalopathy [Unknown]
  - Brain oedema [Unknown]
  - Haemorrhage intracranial [Unknown]
  - Cerebral ischaemia [Unknown]
  - Brain herniation [Unknown]
  - Liver transplant [Unknown]
  - Hyperammonaemia [Unknown]
  - Toxicity to various agents [Unknown]
